FAERS Safety Report 6913298-2 (Version None)
Quarter: 2010Q3

REPORT INFORMATION
  Report Type: 
  Country: None (occurrence: None)
  Receive Date: 20100809
  Receipt Date: 20100728
  Transmission Date: 20110219
  Serious: No
  Sender: FDA-Public Use
  Company Number: US-BIOGENIDEC-2010BI026245

PATIENT
  Sex: Female

DRUGS (1)
  1. AVONEX [Suspect]
     Indication: MULTIPLE SCLEROSIS
     Route: 030
     Dates: start: 19960822

REACTIONS (4)
  - FATIGUE [None]
  - OSTEOPOROSIS [None]
  - THYROID FUNCTION TEST ABNORMAL [None]
  - VITAMIN D DEFICIENCY [None]
